FAERS Safety Report 7675465-2 (Version None)
Quarter: 2011Q3

REPORT INFORMATION
  Report Type: 
  Country: None (occurrence: None)
  Receive Date: 20110810
  Receipt Date: 20110803
  Transmission Date: 20111222
  Serious: Yes (Hospitalization)
  Sender: FDA-Public Use
  Company Number: US-US-EMD SERONO, INC.-7050747

PATIENT
  Sex: Female
  Weight: 54 kg

DRUGS (4)
  1. OTHER UNSPECIFIED MEDICATIONS [Concomitant]
  2. PERCOCET [Concomitant]
     Indication: PAIN
  3. FENTANYL [Concomitant]
     Indication: PAIN
  4. REBIF [Suspect]
     Indication: PROGRESSIVE MULTIPLE SCLEROSIS
     Route: 058
     Dates: start: 20100513, end: 20110301

REACTIONS (3)
  - CLOSTRIDIAL INFECTION [None]
  - MULTIPLE SCLEROSIS [None]
  - NOSOCOMIAL INFECTION [None]
